FAERS Safety Report 9290092 (Version 1)
Quarter: 2013Q2

REPORT INFORMATION
  Report Type: Spontaneous
  Country: US (occurrence: US)
  Receive Date: 20130515
  Receipt Date: 20130515
  Transmission Date: 20140414
  Serious: Yes (Hospitalization)
  Sender: FDA-Public Use
  Company Number: US-OPTIMER PHARMACEUTICALS, INC.-20120048

PATIENT
  Age: 63 Year
  Sex: Female

DRUGS (5)
  1. DIFICID [Suspect]
     Indication: CLOSTRIDIUM DIFFICILE COLITIS
     Dosage: UNK
     Route: 048
     Dates: start: 201112, end: 201112
  2. DIFICID [Suspect]
     Dosage: UNK
     Route: 048
     Dates: start: 201201, end: 201201
  3. VANCOMYCIN [Concomitant]
     Indication: CLOSTRIDIUM DIFFICILE COLITIS
     Dosage: UNK
     Dates: start: 201112, end: 201112
  4. VANCOMYCIN [Concomitant]
     Dosage: UNK
     Dates: start: 201111, end: 2011
  5. METRONIDAZOLE [Concomitant]
     Indication: CLOSTRIDIUM DIFFICILE COLITIS
     Dosage: UNK
     Dates: start: 201112, end: 201112

REACTIONS (2)
  - Clostridium difficile colitis [Unknown]
  - Disease recurrence [Unknown]
